FAERS Safety Report 18688594 (Version 1)
Quarter: 2020Q4

REPORT INFORMATION
  Report Type: Spontaneous
  Country: US (occurrence: US)
  Receive Date: 20201231
  Receipt Date: 20201231
  Transmission Date: 20210114
  Serious: Yes (Other)
  Sender: FDA-Public Use
  Company Number: US-PROCTER_AND_GAMBLE-GS20148298

PATIENT

DRUGS (2)
  1. CREST 3D WHITE [Suspect]
     Active Substance: SODIUM FLUORIDE
     Route: 002
  2. CREST 3D WHITE LUXE [Suspect]
     Active Substance: POTASSIUM NITRATE\SODIUM FLUORIDE

REACTIONS (1)
  - Tooth injury [Unknown]
